FAERS Safety Report 11619532 (Version 1)
Quarter: 2015Q4

REPORT INFORMATION
  Report Type: Spontaneous
  Country: US (occurrence: US)
  Receive Date: 20151012
  Receipt Date: 20151012
  Transmission Date: 20160304
  Serious: Yes (Hospitalization, Other)
  Sender: FDA-Public Use
  Company Number: US-GLAXOSMITHKLINE-US2015GSK143082

PATIENT
  Age: 69 Year
  Sex: Female
  Weight: 106 kg

DRUGS (19)
  1. TORSEMIDE. [Suspect]
     Active Substance: TORSEMIDE
     Indication: CARDIAC FAILURE CONGESTIVE
     Dosage: 20 MG, QD
     Route: 048
     Dates: start: 2012, end: 20150828
  2. ALLOPURINOL. [Concomitant]
     Active Substance: ALLOPURINOL
  3. FISH OIL [Concomitant]
     Active Substance: FISH OIL
  4. ISOSORBIDE MONONITRATE. [Concomitant]
     Active Substance: ISOSORBIDE MONONITRATE
  5. ATORVASTATIN [Concomitant]
     Active Substance: ATORVASTATIN
  6. FENOFIBRATE. [Concomitant]
     Active Substance: FENOFIBRATE
  7. WARFARIN [Concomitant]
     Active Substance: WARFARIN
  8. OXYBUTYNIN [Concomitant]
     Active Substance: OXYBUTYNIN
  9. COREG [Suspect]
     Active Substance: CARVEDILOL
     Indication: CORONARY ARTERY DISEASE
     Dosage: 6.25 MG, BID
     Route: 048
     Dates: start: 20150805
  10. ASPIRIN. [Concomitant]
     Active Substance: ASPIRIN
  11. SPIRONOLACTONE. [Suspect]
     Active Substance: SPIRONOLACTONE
     Indication: CARDIAC FAILURE CONGESTIVE
     Dosage: 25 MG, BID
     Route: 048
     Dates: start: 20150720, end: 20150828
  12. CHOLECALCIFEROL [Concomitant]
     Active Substance: CHOLECALCIFEROL
  13. MAGNESIUM OXIDE. [Concomitant]
     Active Substance: MAGNESIUM OXIDE
  14. MULTAQ [Suspect]
     Active Substance: DRONEDARONE
     Indication: ATRIAL FIBRILLATION
     Dosage: 400 MG, BID
     Route: 048
     Dates: start: 20150805, end: 20150829
  15. LEVEMIR [Concomitant]
     Active Substance: INSULIN DETEMIR
  16. NOVOLOG [Concomitant]
     Active Substance: INSULIN ASPART
  17. MUCOMYST [Concomitant]
     Active Substance: ACETYLCYSTEINE
  18. COREG [Suspect]
     Active Substance: CARVEDILOL
     Indication: CARDIAC FAILURE CONGESTIVE
     Dosage: 3.125 MG, BID
     Route: 048
     Dates: end: 20150829
  19. NIASPAN [Concomitant]
     Active Substance: NIACIN

REACTIONS (6)
  - Angina pectoris [Unknown]
  - Acute kidney injury [Unknown]
  - Bradycardia [Recovered/Resolved]
  - Condition aggravated [Unknown]
  - Normochromic normocytic anaemia [Unknown]
  - Sinus arrest [Recovered/Resolved]
